FAERS Safety Report 24439125 (Version 1)
Quarter: 2024Q4

REPORT INFORMATION
  Report Type: Spontaneous
  Country: US (occurrence: US)
  Receive Date: 20241015
  Receipt Date: 20241015
  Transmission Date: 20250115
  Serious: No
  Sender: WAYLIS THERAPEUTICS
  Company Number: US-WAYLIS-2023-US-037603

PATIENT
  Sex: 0

DRUGS (6)
  1. RABEPRAZOLE SODIUM [Suspect]
     Active Substance: RABEPRAZOLE SODIUM
     Indication: Product used for unknown indication
     Dosage: 40 (NO UNIT SPECIFIED) AT NIGHT
     Route: 065
     Dates: start: 2010, end: 2023
  2. NURTEC ODT [Suspect]
     Active Substance: RIMEGEPANT SULFATE
     Dosage: 10MG EVERY OTHER DAY
     Route: 065
     Dates: start: 202210
  3. DILANTIN [Suspect]
     Active Substance: PHENYTOIN
     Dosage: 2 MORNING/ 2 NIGHT (NO UNIT SPECIFIED)
     Route: 065
     Dates: start: 1998
  4. LANSOPRAZOLE [Suspect]
     Active Substance: LANSOPRAZOLE
     Dosage: UNKNOWN
     Route: 065
     Dates: start: 202306, end: 2023
  5. TUMS [Suspect]
     Active Substance: CALCIUM CARBONATE
     Dosage: UNKNOWN
     Route: 065
     Dates: start: 20230415, end: 2023
  6. PEPCID [Suspect]
     Active Substance: FAMOTIDINE
     Dosage: UNKNOWN
     Route: 065
     Dates: start: 20230415, end: 2023

REACTIONS (4)
  - Dyspepsia [Not Recovered/Not Resolved]
  - Headache [Recovered/Resolved]
  - Abdominal pain upper [Not Recovered/Not Resolved]
  - Asthenia [Not Recovered/Not Resolved]

NARRATIVE: CASE EVENT DATE: 20221001
